FAERS Safety Report 7790102-4 (Version None)
Quarter: 2011Q3

REPORT INFORMATION
  Report Type: 
  Country: None (occurrence: None)
  Receive Date: 20110930
  Receipt Date: 20110520
  Transmission Date: 20111222
  Serious: Yes (Disabling)
  Sender: FDA-Public Use
  Company Number: US-ASTRAZENECA-2011SE31091

PATIENT
  Age: 53 Year
  Sex: Female

DRUGS (10)
  1. SYNTHROID [Concomitant]
     Indication: HYPOTHYROIDISM
  2. SIMVASTATIN [Concomitant]
     Indication: HYPERCHOLESTEROLAEMIA
  3. FOSAMAX [Suspect]
  4. COUMADIN [Concomitant]
     Indication: THROMBOSIS
  5. CELEXA [Concomitant]
     Indication: DEPRESSION
  6. ARIMIDEX [Suspect]
     Indication: BREAST CANCER
     Route: 048
     Dates: start: 20040101, end: 20090101
  7. CALCIUM CARBONATE [Concomitant]
     Indication: OSTEOPOROSIS
  8. WELLBUTRIN [Concomitant]
     Indication: DEPRESSION
  9. CLONOPIN [Concomitant]
     Indication: DEPRESSION
  10. VITAMIN D AND D3 [Concomitant]
     Indication: OSTEOPOROSIS

REACTIONS (5)
  - BONE PAIN [None]
  - OSTEOPOROSIS [None]
  - PAIN IN JAW [None]
  - SLEEP DISORDER DUE TO GENERAL MEDICAL CONDITION, INSOMNIA TYPE [None]
  - ACTIVITIES OF DAILY LIVING IMPAIRED [None]
